FAERS Safety Report 7988833-6 (Version None)
Quarter: 2011Q4

REPORT INFORMATION
  Report Type: 
  Country: None (occurrence: None)
  Receive Date: 20111215
  Receipt Date: 20111215
  Transmission Date: 20120403
  Serious: Yes (Death)
  Sender: FDA-Public Use
  Company Number: None

PATIENT
  Age: 55 Year
  Sex: Male
  Weight: 85.5 kg

DRUGS (11)
  1. INCIVEK [Suspect]
     Indication: HEPATITIS C
     Dosage: 375 MG-2 TABLETS EVERY 8 HOURS ORAL
     Route: 048
     Dates: start: 20110923, end: 20111212
  2. NORCO [Concomitant]
  3. SYNTHROID [Concomitant]
  4. M.V.I. [Concomitant]
  5. RIBAVIRIN [Suspect]
     Indication: HEPATITIS C
     Dosage: 400 MG AND 600 MG 1 EACH DAILY ORAL
     Route: 048
     Dates: start: 20110923, end: 20111212
  6. FISH OIL [Concomitant]
  7. PEGASYS [Suspect]
     Dosage: 180 MCG WEEKLY SUBCUTANEOUS INJECTION
     Route: 058
     Dates: start: 20110923, end: 20111209
  8. LISINOPRIL [Concomitant]
  9. GLUCOSAMINE [Concomitant]
  10. AMITRIPTYLINE HCL [Concomitant]
  11. CLONAZEPAM [Concomitant]

REACTIONS (4)
  - MYALGIA [None]
  - ARTHRALGIA [None]
  - FATIGUE [None]
  - ANAEMIA [None]
